FAERS Safety Report 17002332 (Version 3)
Quarter: 2021Q1

REPORT INFORMATION
  Report Type: Spontaneous
  Country: GB (occurrence: GB)
  Receive Date: 20191106
  Receipt Date: 20210111
  Transmission Date: 20210419
  Serious: Yes (Other)
  Sender: FDA-Public Use
  Company Number: GB-SUN PHARMACEUTICAL INDUSTRIES LTD-2019RR-226537

PATIENT
  Age: 24 Year
  Sex: Female

DRUGS (1)
  1. CITALOPRAM [Suspect]
     Active Substance: CITALOPRAM HYDROBROMIDE
     Indication: PRODUCT USED FOR UNKNOWN INDICATION
     Dosage: DIFFERENT DOSES 20MG, 30MG, AND 40MG.
     Route: 065
     Dates: start: 201511, end: 201906

REACTIONS (7)
  - Calcinosis [Recovering/Resolving]
  - Calcium deficiency [Recovered/Resolved]
  - Visual impairment [Recovering/Resolving]
  - Intentional overdose [Unknown]
  - Calcium deficiency [Recovering/Resolving]
  - Papilloedema [Recovered/Resolved]
  - Ankle fracture [Unknown]

NARRATIVE: CASE EVENT DATE: 2015
